FAERS Safety Report 7913740-4 (Version None)
Quarter: 2011Q4

REPORT INFORMATION
  Report Type: 
  Country: None (occurrence: None)
  Receive Date: 20111115
  Receipt Date: 20111104
  Transmission Date: 20120403
  Serious: Yes (Other)
  Sender: FDA-Public Use
  Company Number: FR-CELGENEUS-056-C5013-11110797

PATIENT
  Sex: Male
  Weight: 76 kg

DRUGS (10)
  1. SPIRIVA [Concomitant]
     Indication: CHRONIC OBSTRUCTIVE PULMONARY DISEASE
     Dosage: 18 MICROGRAM
     Route: 048
     Dates: start: 19990101
  2. PREVISCAN [Concomitant]
     Indication: THROMBOSIS PROPHYLAXIS
     Dosage: 20 MILLIGRAM
     Route: 048
     Dates: start: 20080901
  3. MYOLASTAN [Concomitant]
     Dosage: 25 MILLIGRAM
     Route: 048
     Dates: start: 20100409
  4. LENALIDOMIDE [Suspect]
     Dosage: 25 MILLIGRAM
     Route: 048
     Dates: end: 20110114
  5. DIGOXIN [Concomitant]
     Dosage: 250 MICROGRAM
     Route: 048
     Dates: start: 20090901
  6. SYMBICORT [Concomitant]
     Indication: CHRONIC OBSTRUCTIVE PULMONARY DISEASE
     Route: 055
     Dates: start: 19990101
  7. MAXAIR [Concomitant]
     Indication: CHRONIC OBSTRUCTIVE PULMONARY DISEASE
     Route: 055
     Dates: start: 19990101
  8. DEXAMETHASONE [Suspect]
     Indication: MULTIPLE MYELOMA
     Dosage: 40 MILLIGRAM
     Route: 065
     Dates: start: 20091120, end: 20101028
  9. LYTOS [Concomitant]
     Indication: PROPHYLAXIS
     Dosage: 1040 MILLIGRAM
     Route: 048
     Dates: start: 20101002
  10. LENALIDOMIDE [Suspect]
     Indication: MULTIPLE MYELOMA
     Dosage: 25 MILLIGRAM
     Route: 048
     Dates: start: 20091120

REACTIONS (1)
  - PROSTATE CANCER STAGE II [None]
